FAERS Safety Report 21387114 (Version 1)
Quarter: 2022Q3

REPORT INFORMATION
  Report Type: Spontaneous
  Country: US (occurrence: US)
  Receive Date: 20220928
  Receipt Date: 20220928
  Transmission Date: 20221027
  Serious: No
  Sender: FDA-Public Use
  Company Number: US-TAKEDA-US202016636

PATIENT
  Age: 59 Year
  Sex: Female

DRUGS (3)
  1. NATPARA (PARATHYROID HORMONE) [Suspect]
     Active Substance: PARATHYROID HORMONE
     Indication: Product used for unknown indication
     Dosage: 50 MICROGRAM
     Route: 058
     Dates: start: 20151105
  2. NATPARA (PARATHYROID HORMONE) [Suspect]
     Active Substance: PARATHYROID HORMONE
     Indication: Product used for unknown indication
     Dosage: 50 MICROGRAM
     Route: 058
     Dates: start: 20151105
  3. NATPARA (PARATHYROID HORMONE) [Suspect]
     Active Substance: PARATHYROID HORMONE
     Indication: Product used for unknown indication
     Dosage: 50 MICROGRAM
     Route: 058
     Dates: start: 20151105

REACTIONS (4)
  - Inappropriate schedule of product administration [Unknown]
  - Multiple use of single-use product [Unknown]
  - Product use issue [Unknown]
  - No adverse event [Unknown]

NARRATIVE: CASE EVENT DATE: 20200515
